FAERS Safety Report 9558242 (Version 2)
Quarter: 2014Q1

REPORT INFORMATION
  Report Type: Report from Study
  Country: AR (occurrence: AR)
  Receive Date: 20130926
  Receipt Date: 20140126
  Transmission Date: 20141002
  Serious: Yes (Death)
  Sender: FDA-Public Use
  Company Number: AR-US-EMD SERONO, INC.-7239493

PATIENT
  Sex: Female

DRUGS (1)
  1. REBIF [Suspect]
     Indication: MULTIPLE SCLEROSIS
     Dates: start: 20010915

REACTIONS (2)
  - Lung infection [Fatal]
  - Urinary tract infection [Fatal]
